FAERS Safety Report 10061797 (Version 3)
Quarter: 2014Q2

REPORT INFORMATION
  Report Type: Spontaneous
  Country: US (occurrence: US)
  Receive Date: 20140407
  Receipt Date: 20140609
  Transmission Date: 20141212
  Serious: Yes (Congenital Anomaly, Other)
  Sender: FDA-Public Use
  Company Number: US-BIOGENIDEC-2014BI032847

PATIENT
  Age: 1 Day
  Sex: Male
  Weight: 1 kg

DRUGS (2)
  1. AVONEX [Suspect]
     Indication: MATERNAL EXPOSURE TIMING UNSPECIFIED
     Route: 064
     Dates: start: 20121005, end: 20121105
  2. DACLIZUMAB [Concomitant]

REACTIONS (11)
  - Cardiac malposition [Not Recovered/Not Resolved]
  - Double outlet right ventricle [Unknown]
  - Transposition of the great vessels [Unknown]
  - Congenital pulmonary valve atresia [Unknown]
  - Congenital hydronephrosis [Recovered/Resolved]
  - Right ventricular hypertrophy [Unknown]
  - Patent ductus arteriosus [Recovered/Resolved]
  - Foetal heart rate abnormal [Unknown]
  - Low birth weight baby [Unknown]
  - Foetal growth restriction [Unknown]
  - Umbilical cord around neck [Recovered/Resolved]
